FAERS Safety Report 7592975-7 (Version None)
Quarter: 2011Q3

REPORT INFORMATION
  Report Type: 
  Country: None (occurrence: None)
  Receive Date: 20110706
  Receipt Date: 20110630
  Transmission Date: 20111222
  Serious: Yes (Other)
  Sender: FDA-Public Use
  Company Number: US-GLAXOSMITHKLINE-A0934008A

PATIENT
  Age: 20 Year
  Sex: Male

DRUGS (4)
  1. PROPECIA [Concomitant]
  2. OLUX E [Suspect]
     Indication: SKIN REACTION
     Dosage: 1APP TWICE PER DAY
     Route: 061
     Dates: start: 20110616
  3. ROGAINE [Suspect]
     Indication: PRODUCT USED FOR UNKNOWN INDICATION
  4. DURICEF [Concomitant]
     Indication: BACTERIAL INFECTION

REACTIONS (1)
  - LIVER FUNCTION TEST ABNORMAL [None]
